FAERS Safety Report 23099257 (Version 1)
Quarter: 2023Q4

REPORT INFORMATION
  Report Type: Spontaneous
  Country: US (occurrence: US)
  Receive Date: 20231024
  Receipt Date: 20231024
  Transmission Date: 20240109
  Serious: No
  Sender: FDA-Public Use
  Company Number: US-APIL-2309148US

PATIENT
  Sex: Male

DRUGS (1)
  1. COMBIGAN [Suspect]
     Active Substance: BRIMONIDINE TARTRATE\TIMOLOL MALEATE
     Indication: Intraocular pressure increased
     Dosage: DOSE DESC: UNK
     Route: 047

REACTIONS (3)
  - Autoimmune disorder [Unknown]
  - Intraocular pressure increased [Unknown]
  - Iritis [Unknown]
